FAERS Safety Report 11873376 (Version 1)
Quarter: 2015Q4

REPORT INFORMATION
  Report Type: Spontaneous
  Country: GB (occurrence: GB)
  Receive Date: 20151228
  Receipt Date: 20151228
  Transmission Date: 20160305
  Serious: Yes (Other)
  Sender: FDA-Public Use
  Company Number: GB-TEVA-619668ACC

PATIENT
  Age: 69 Year
  Sex: Female
  Weight: 99 kg

DRUGS (16)
  1. ARCOXIA [Concomitant]
     Active Substance: ETORICOXIB
     Dosage: 1 DOSAGE FORMS DAILY;
     Dates: start: 20151103
  2. DULOXETINE. [Concomitant]
     Active Substance: DULOXETINE
     Dosage: 2 DOSAGE FORMS DAILY;
     Dates: start: 20140909
  3. FLUTICASONE [Concomitant]
     Active Substance: FLUTICASONE\FLUTICASONE PROPIONATE
     Dosage: 4 DOSAGE FORMS DAILY;
     Route: 055
     Dates: start: 20151103
  4. ZAPAIN [Concomitant]
     Active Substance: ACETAMINOPHEN\CODEINE PHOSPHATE
     Dosage: TAKE 1 OR 2, FOUR TIMES DAILY AS NEEDED
     Dates: start: 20140909
  5. BENDROFLUMETHIAZIDE [Concomitant]
     Active Substance: BENDROFLUMETHIAZIDE
     Dosage: 1 DOSAGE FORMS DAILY; IN THE MORNING
     Dates: start: 20140909
  6. SITAGLIPTIN [Concomitant]
     Active Substance: SITAGLIPTIN
     Dosage: 1 DOSAGE FORMS DAILY;
     Dates: start: 20140909
  7. LANSOPRAZOLE. [Concomitant]
     Active Substance: LANSOPRAZOLE
     Dates: start: 20140909
  8. METFORMIN [Concomitant]
     Active Substance: METFORMIN HYDROCHLORIDE
     Dosage: 2 DOSAGE FORMS DAILY; WITH EVENING MEAL
     Dates: start: 20140909
  9. CANAGLIFLOZIN [Concomitant]
     Active Substance: CANAGLIFLOZIN
     Dosage: 1 DOSAGE FORMS DAILY;
     Dates: start: 20151116
  10. FOLIC ACID. [Concomitant]
     Active Substance: FOLIC ACID
     Dates: start: 20150629
  11. GLICLAZIDE [Concomitant]
     Active Substance: GLICLAZIDE
     Dosage: 1 DOSAGE FORMS DAILY; IN THE EVENING TOGETHER WITH 40MG
     Dates: start: 20140909, end: 20151116
  12. HYDROXYCHLOROQUINE SULFATE. [Concomitant]
     Active Substance: HYDROXYCHLOROQUINE SULFATE
     Dosage: 2 DOSAGE FORMS DAILY;
     Dates: start: 20140909
  13. METHOTREXATE [Suspect]
     Active Substance: METHOTREXATE
     Dates: start: 20150727
  14. BIMATOPROST. [Concomitant]
     Active Substance: BIMATOPROST
     Dosage: 1 GTT DAILY; ONE DROP AT NIGHT TO RIGHT EYE
     Route: 047
     Dates: start: 20140909
  15. PREGABALIN. [Concomitant]
     Active Substance: PREGABALIN
     Dosage: 2 DOSAGE FORMS DAILY;
     Dates: start: 20140909
  16. SALBUTAMOL [Concomitant]
     Active Substance: ALBUTEROL
     Route: 055
     Dates: start: 20151103

REACTIONS (1)
  - Suicidal ideation [Recovered/Resolved]

NARRATIVE: CASE EVENT DATE: 20151207
